FAERS Safety Report 25158985 (Version 2)
Quarter: 2025Q2

REPORT INFORMATION
  Report Type: Spontaneous
  Country: CN (occurrence: CN)
  Receive Date: 20250404
  Receipt Date: 20250411
  Transmission Date: 20250716
  Serious: Yes (Hospitalization, Disabling)
  Sender: CSL BEHRING
  Company Number: CN-BEH-2025200928

PATIENT
  Age: 75 Year
  Sex: Female
  Weight: 53 kg

DRUGS (1)
  1. ALBURX [Suspect]
     Active Substance: ALBUMIN HUMAN
     Indication: Hypoproteinaemia
     Dosage: 20 G, QD
     Route: 041
     Dates: start: 20250226, end: 20250227

REACTIONS (1)
  - Renal impairment [Recovering/Resolving]

NARRATIVE: CASE EVENT DATE: 20250227
